FAERS Safety Report 6879941-1 (Version None)
Quarter: 2010Q3

REPORT INFORMATION
  Report Type: 
  Country: None (occurrence: None)
  Receive Date: 20100728
  Receipt Date: 20100722
  Transmission Date: 20110219
  Serious: Yes (Hospitalization, Other)
  Sender: FDA-Public Use
  Company Number: GB-WYE-G06442610

PATIENT
  Sex: Female
  Weight: 93 kg

DRUGS (3)
  1. EFFEXOR XR [Suspect]
     Indication: DEPRESSION
     Route: 048
     Dates: start: 19980101
  2. TEMAZEPAM [Concomitant]
     Indication: INSOMNIA
     Dosage: 10 MG AS REQUIRED
     Route: 048
     Dates: start: 20010910
  3. DIAZEPAM [Concomitant]
     Indication: ANXIETY
     Dosage: 5 MG THREE TIMES A DAY AS REQUIRED
     Route: 048
     Dates: start: 20010919

REACTIONS (2)
  - DRUG WITHDRAWAL SYNDROME [None]
  - MAJOR DEPRESSION [None]
